FAERS Safety Report 24868390 (Version 1)
Quarter: 2025Q1

REPORT INFORMATION
  Report Type: Spontaneous
  Country: US (occurrence: None)
  Receive Date: 20250120
  Receipt Date: 20250120
  Transmission Date: 20250408
  Serious: Yes (Other)
  Sender: FDA-CTU
  Company Number: None

PATIENT
  Age: 59 Year
  Sex: Female
  Weight: 108.9 kg

DRUGS (1)
  1. VANCOMYCIN HYDROCHLORIDE [Suspect]
     Active Substance: VANCOMYCIN HYDROCHLORIDE
     Indication: Acute sinusitis
     Route: 042
     Dates: start: 20250108, end: 20250111

REACTIONS (2)
  - Rash pruritic [None]
  - Burning sensation [None]

NARRATIVE: CASE EVENT DATE: 20250110
